FAERS Safety Report 9147935 (Version 2)
Quarter: 2013Q4

REPORT INFORMATION
  Report Type: Spontaneous
  Country: US (occurrence: US)
  Receive Date: 20130228
  Receipt Date: 20131212
  Transmission Date: 20140711
  Serious: Yes (Other)
  Sender: FDA-Public Use
  Company Number: US-RB-046962-12

PATIENT
  Age: 0 None
  Sex: Female

DRUGS (6)
  1. GENERIC BUPRENORPHINE [Suspect]
     Indication: DRUG DEPENDENCE
     Dosage: VARIOUS DOSING
     Route: 064
     Dates: start: 201108, end: 20120308
  2. GENERIC BUPRENORPHINE [Suspect]
     Route: 063
     Dates: start: 20120308, end: 201208
  3. SUBUTEX [Suspect]
     Indication: DRUG DEPENDENCE
     Dosage: DOSING DETAILS UNKNOWN
     Route: 064
  4. NICOTINE [Suspect]
     Indication: NICOTINE DEPENDENCE
     Dosage: DOSING DETAILS UNKNOWN
     Route: 064
     Dates: start: 201106, end: 20120308
  5. NICOTINE [Suspect]
     Dosage: DOSING DETAILS UNKNOWN
     Route: 063
     Dates: start: 20120308, end: 201208
  6. PRENATAL VITAMINS [Suspect]
     Indication: VITAMIN SUPPLEMENTATION
     Dosage: 1 TABLET/DAILY
     Route: 064
     Dates: start: 201108, end: 20120308

REACTIONS (3)
  - Foetal exposure during pregnancy [Recovered/Resolved]
  - Low birth weight baby [Recovered/Resolved]
  - Exposure during breast feeding [Recovered/Resolved]
